FAERS Safety Report 7384135-X (Version None)
Quarter: 2011Q1

REPORT INFORMATION
  Report Type: 
  Country: None (occurrence: None)
  Receive Date: 20110330
  Receipt Date: 20110323
  Transmission Date: 20110831
  Serious: Yes (Hospitalization)
  Sender: FDA-Public Use
  Company Number: A0920357A

PATIENT
  Age: 72 Year
  Sex: Female

DRUGS (5)
  1. AVANDIA [Suspect]
     Route: 048
     Dates: start: 20050101, end: 20070101
  2. LEVOXYL [Concomitant]
  3. AVANDAMET [Suspect]
     Route: 048
     Dates: start: 20040101, end: 20050101
  4. PROPRANOLOL [Concomitant]
  5. ASPIRIN [Concomitant]

REACTIONS (2)
  - VENTRICULAR EXTRASYSTOLES [None]
  - CORONARY ARTERY DISEASE [None]
